FAERS Safety Report 17197314 (Version 1)
Quarter: 2019Q4

REPORT INFORMATION
  Report Type: Other
  Country: DE (occurrence: DE)
  Receive Date: 20191224
  Receipt Date: 20191224
  Transmission Date: 20200122
  Serious: Yes (Hospitalization)
  Sender: FDA-Public Use
  Company Number: DE-TOPROL ACQUISITION LLC-2019-TOP-001624

PATIENT
  Age: 89 Year
  Sex: Female

DRUGS (9)
  1. ACETYLSALICYLIC ACID [Concomitant]
     Active Substance: ASPIRIN
     Dosage: 100 MG, 1-0-0-0
     Route: 048
  2. NITRENDIPIN [Concomitant]
     Active Substance: NITRENDIPINE
     Dosage: 20 MG, 1-0-0-1
     Route: 048
  3. VALSARTAN. [Concomitant]
     Active Substance: VALSARTAN
     Dosage: 160 MG, 1-0-0-1
     Route: 048
  4. FUROSEMIDE. [Concomitant]
     Active Substance: FUROSEMIDE
     Dosage: 80 MG, 2-1-0-0
     Route: 048
  5. PANCREATIN [Concomitant]
     Active Substance: PANCRELIPASE
     Dosage: 40000 MG, 1-1-1-0
     Route: 048
  6. URAPIDIL [Concomitant]
     Active Substance: URAPIDIL
     Dosage: 60 MG, 1-0-1-0
     Route: 048
  7. ISOPHANE INSULINE [Concomitant]
     Dosage: 25/100 IE, 10-0-6-0
     Route: 058
  8. METOPROLOL SUCCINATE. [Suspect]
     Active Substance: METOPROLOL SUCCINATE
     Indication: PRODUCT USED FOR UNKNOWN INDICATION
     Dosage: 95 MG, 0.5-0-0.5-1
     Route: 048
  9. PANTOPRAZOL                        /01263201/ [Concomitant]
     Active Substance: PANTOPRAZOLE
     Dosage: 40 MG, 1-0-0-0
     Route: 048

REACTIONS (2)
  - Dyspnoea [Unknown]
  - Rhonchi [Unknown]
